FAERS Safety Report 4449003-1 (Version None)
Quarter: 2004Q3

REPORT INFORMATION
  Report Type: 
  Country: None (occurrence: None)
  Receive Date: 20040910
  Receipt Date: 20040826
  Transmission Date: 20050211
  Serious: Yes (Death)
  Sender: FDA-Public Use
  Company Number: 2004AP03493

PATIENT
  Age: 78 Year
  Sex: Male

DRUGS (7)
  1. CASODEX [Suspect]
     Indication: PROSTATE CANCER
     Dosage: 80 MG DAILY PO
     Route: 048
     Dates: start: 20040618, end: 20040701
  2. HARNAL [Concomitant]
  3. FLUMARIN [Concomitant]
  4. ATARAX [Concomitant]
  5. CRAVIT [Concomitant]
  6. MINOPHAGEN [Concomitant]
  7. FURSENNID [Concomitant]

REACTIONS (8)
  - ANOREXIA [None]
  - FOREIGN BODY ASPIRATION [None]
  - HAEMATEMESIS [None]
  - INJURY ASPHYXIATION [None]
  - MELAENA [None]
  - PANCYTOPENIA [None]
  - RESPIRATORY DISORDER [None]
  - URINARY TRACT INFECTION [None]
